FAERS Safety Report 4700569-3 (Version None)
Quarter: 2005Q2

REPORT INFORMATION
  Report Type: 
  Country: None (occurrence: None)
  Receive Date: 20050627
  Receipt Date: 20050627
  Transmission Date: 20051028
  Serious: No
  Sender: FDA-Public Use
  Company Number: None

PATIENT
  Sex: Male
  Weight: 110.9 kg

DRUGS (15)
  1. ALLOPURINOL [Suspect]
     Dosage: 300 MG PO QD ON DAYS 1-14
     Route: 048
  2. CYCLOPHOSPHAMIDE [Suspect]
     Dosage: 1200 MG/M2 IV OVER 15-30 MIN ON DAY 1.
     Route: 042
  3. DAUNORUBICIN [Suspect]
     Dosage: 80 MG/M2/DAY X 3 DAYS IV ON DAYS 1,2,3
  4. VINCRISTINE [Suspect]
     Dosage: 2 MG IVP ON DAYS 1,8,15,22
     Route: 042
  5. DEXAMETHASONE [Suspect]
     Dosage: 5 MG/M2 PO BID ON DAYS 1-7 AND 15-21
     Route: 048
  6. ELSPAR [Suspect]
     Dosage: 6000 U/M2 SC/IM ON DAYS 5,8,11,15,18,22
     Route: 058
  7. ELSPAR [Suspect]
     Dosage: 6000 U/M2 SC/IM ON DAYS 5,8,11,15,18,22
     Route: 030
  8. G-CSF [Suspect]
     Dosage: 5 MCG/KG/DAY SC STARTING DAY 4 X 7 DAYS AND CONTINUING UNTIL ANC IS } 5000 MCL PRN
     Route: 058
  9. METHOTREXATE [Suspect]
     Dosage: 15 MG IT
     Route: 037
  10. HYDROCORTISONE [Suspect]
     Dosage: 50 MG IT
     Route: 037
  11. CYCLOPHOSPHAMIDE [Suspect]
     Dosage: 1000 MG/M2 IV OVER 15-30 MIN ON DAY 1
     Route: 042
  12. CYTARABINE [Suspect]
     Dosage: 2000 MG/M2 IV OVER 2HR ON DAYS 1,2,AND 3
     Route: 042
  13. DEXAMETHASONE [Suspect]
     Dosage: 2 DROPS EACH EYE QID AD PRN ON DAYS 1,2,3, AND 4
     Route: 047
  14. NEUPOGEN [Suspect]
     Dosage: 5 MCG/KG/DAY SC BEGINNING ON DAY 4 AND CONTINUING UNTIL ANC } 5000 MCL.
     Route: 058
  15. COTRIMOXAZOLE DS [Suspect]
     Dosage: ONE TABLET PO BID 3 DAYS/WEEK UNTIL THE COMPLETION OF ALL CHEMOTHERAPY

REACTIONS (4)
  - COUGH [None]
  - FEBRILE NEUTROPENIA [None]
  - LUNG INFECTION [None]
  - SPUTUM DISCOLOURED [None]
